FAERS Safety Report 15023514 (Version 1)
Quarter: 2018Q2

REPORT INFORMATION
  Report Type: Spontaneous
  Country: IT (occurrence: IT)
  Receive Date: 20180618
  Receipt Date: 20180618
  Transmission Date: 20180711
  Serious: Yes (Hospitalization)
  Sender: FDA-Public Use
  Company Number: IT-NOVOPROD-605180

PATIENT
  Age: 69 Year
  Sex: Male
  Weight: 82 kg

DRUGS (3)
  1. LEVEMIR [Suspect]
     Active Substance: INSULIN DETEMIR
     Dosage: UNK (DECREASED DOSE)
     Route: 058
  2. METFORMIN [Concomitant]
     Active Substance: METFORMIN HYDROCHLORIDE
     Indication: DIABETES MELLITUS
     Dosage: 1000 MG
     Route: 048
  3. LEVEMIR [Suspect]
     Active Substance: INSULIN DETEMIR
     Indication: DIABETES MELLITUS
     Dosage: 18 IU
     Route: 058
     Dates: start: 20000101

REACTIONS (6)
  - Syncope [Unknown]
  - Hypoglycaemia [Unknown]
  - Ligament sprain [Unknown]
  - Cardiac failure [Unknown]
  - Lipodystrophy acquired [Unknown]
  - Spinal cord injury cervical [Unknown]

NARRATIVE: CASE EVENT DATE: 20180525
